FAERS Safety Report 7494735-4 (Version None)
Quarter: 2011Q2

REPORT INFORMATION
  Report Type: 
  Country: None (occurrence: None)
  Receive Date: 20110520
  Receipt Date: 20110512
  Transmission Date: 20111010
  Serious: Yes (Hospitalization)
  Sender: FDA-Public Use
  Company Number: US-BAXTER-2011BH015970

PATIENT
  Age: 64 Year
  Sex: Female

DRUGS (3)
  1. EXTRANEAL [Suspect]
     Indication: PERITONEAL DIALYSIS
     Route: 033
  2. DIANEAL [Suspect]
     Indication: PERITONEAL DIALYSIS
     Route: 033
     Dates: start: 20110505
  3. DIANEAL [Suspect]
     Route: 033
     Dates: start: 20110505

REACTIONS (3)
  - HYPERSENSITIVITY [None]
  - TREATMENT NONCOMPLIANCE [None]
  - BLOOD GLUCOSE DECREASED [None]
